FAERS Safety Report 8604457-1 (Version None)
Quarter: 2012Q3

REPORT INFORMATION
  Report Type: 
  Country: None (occurrence: None)
  Receive Date: 20120820
  Receipt Date: 20120809
  Transmission Date: 20120928
  Serious: Yes (Other)
  Sender: FDA-Public Use
  Company Number: US-JNJFOC-20120805133

PATIENT
  Sex: Female
  Weight: 120.2 kg

DRUGS (12)
  1. LORAZEPAM [Concomitant]
     Indication: ANXIETY
     Route: 048
     Dates: start: 20070101
  2. AN UNKNOWN MEDICATION [Concomitant]
     Indication: MINERAL SUPPLEMENTATION
     Route: 048
  3. DURAGESIC-100 [Suspect]
     Indication: PAIN
     Route: 062
  4. AMILORIDE HYDROCHLORIDE [Concomitant]
     Indication: NEPHROLITHIASIS
     Route: 048
     Dates: start: 20040101
  5. LOVASTATIN [Concomitant]
     Indication: BLOOD CHOLESTEROL
     Route: 048
  6. TRAMADOL [Concomitant]
     Indication: PAIN
     Dosage: 100 MG TABLETS 50 MG THREE TIMES A DAY
     Route: 048
  7. CYMBALTA [Concomitant]
     Indication: ABNORMAL BEHAVIOUR
     Route: 048
     Dates: start: 20070101
  8. AN UNKNOWN MEDICATION [Concomitant]
     Route: 048
  9. ASPIRIN [Concomitant]
     Route: 048
  10. CYCLOBENZAPRINE [Concomitant]
     Indication: FIBROMYALGIA
     Route: 048
  11. LYRICA [Concomitant]
     Indication: FIBROMYALGIA
     Route: 048
  12. ESTRADIOL [Concomitant]
     Indication: MEDICAL DIET
     Route: 048

REACTIONS (10)
  - INSOMNIA [None]
  - DRUG DOSE OMISSION [None]
  - DEPRESSION [None]
  - HYPERTENSION [None]
  - PRODUCT QUALITY ISSUE [None]
  - WRONG TECHNIQUE IN DRUG USAGE PROCESS [None]
  - DIABETES MELLITUS [None]
  - PAIN [None]
  - ANXIETY [None]
  - INCORRECT DRUG ADMINISTRATION DURATION [None]
